FAERS Safety Report 4725809-6 (Version None)
Quarter: 2005Q3

REPORT INFORMATION
  Report Type: 
  Country: None (occurrence: None)
  Receive Date: 20050727
  Receipt Date: 20050715
  Transmission Date: 20060218
  Serious: Yes (Other)
  Sender: FDA-Public Use
  Company Number: GB-BRISTOL-MYERS SQUIBB COMPANY-13049986

PATIENT
  Age: 71 Year
  Sex: Female

DRUGS (3)
  1. CETUXIMAB [Suspect]
     Indication: NON-SMALL CELL LUNG CANCER
     Dosage: MOST RECENT DOSE WAS 250 MG/M2 ON 01-JUL-2005.
     Route: 041
     Dates: start: 20050527
  2. CISPLATIN [Suspect]
     Indication: NON-SMALL CELL LUNG CANCER
     Dosage: MOST RECENT TX ON 01-JUL-05.
     Route: 042
     Dates: start: 20050527
  3. VINORELBINE [Suspect]
     Indication: NON-SMALL CELL LUNG CANCER
     Dosage: MOST RECENT TX ON 01-JUL-05.
     Route: 042
     Dates: start: 20050527

REACTIONS (1)
  - PULMONARY EMBOLISM [None]
